FAERS Safety Report 6866636-3 (Version None)
Quarter: 2010Q2

REPORT INFORMATION
  Report Type: 
  Country: None (occurrence: None)
  Receive Date: 20100610
  Receipt Date: 20100405
  Transmission Date: 20101027
  Serious: No
  Sender: FDA-Public Use
  Company Number: 2010SP020116

PATIENT
  Age: 21 Year
  Sex: Male

DRUGS (1)
  1. SAPHRIS [Suspect]
     Indication: SCHIZOPHRENIA

REACTIONS (3)
  - AGITATION [None]
  - INSOMNIA [None]
  - THERAPEUTIC PRODUCT INEFFECTIVE [None]
